FAERS Safety Report 5224496-0 (Version None)
Quarter: 2007Q1

REPORT INFORMATION
  Report Type: 
  Country: None (occurrence: None)
  Receive Date: 20070126
  Receipt Date: 20070110
  Transmission Date: 20070707
  Serious: Yes (Hospitalization)
  Sender: FDA-Public Use
  Company Number: 8021218

PATIENT
  Age: 70 Year
  Sex: Male

DRUGS (4)
  1. KEPPRA [Suspect]
     Indication: CONVULSION
     Dosage: 1500 MG 2/D IV
     Route: 042
     Dates: start: 20061128, end: 20061219
  2. KEPPRA [Suspect]
     Indication: CONVULSION
     Dosage: 1250 MG 2/D IV
     Route: 042
     Dates: start: 20061220, end: 20070105
  3. KEPPRA [Suspect]
     Indication: CONVULSION
     Dosage: 1000 MG 2/D IV
     Route: 042
     Dates: start: 20070106, end: 20070113
  4. KEPPRA [Suspect]
     Indication: CONVULSION
     Dosage: 750 MG 2/D IV
     Route: 042
     Dates: start: 20070114

REACTIONS (5)
  - CONVULSION [None]
  - DRUG INEFFECTIVE [None]
  - LOSS OF CONSCIOUSNESS [None]
  - LUNG INFECTION [None]
  - URINARY TRACT INFECTION [None]
